FAERS Safety Report 21170747 (Version 1)
Quarter: 2022Q3

REPORT INFORMATION
  Report Type: Spontaneous
  Country: DE (occurrence: DE)
  Receive Date: 20220804
  Receipt Date: 20220804
  Transmission Date: 20221027
  Serious: Yes (Death, Other)
  Sender: FDA-Public Use
  Company Number: None

PATIENT
  Sex: Male
  Weight: 1.28 kg

DRUGS (7)
  1. QUETIAPINE [Suspect]
     Active Substance: QUETIAPINE
     Dosage: 75 (MG/D (25-25-25) )
     Dates: start: 20210323, end: 20210702
  2. LITHIUM [Suspect]
     Active Substance: LITHIUM
     Dosage: 900 (MG/D (450-0-450) )
     Dates: start: 20210422, end: 20210731
  3. VENLAFAXINE [Suspect]
     Active Substance: VENLAFAXINE HYDROCHLORIDE
     Dosage: 225 (MG/D (BIS 150 MG/D) )/ REDUCTION TO 150 MG/D AT GW 23 1/7
     Dates: start: 20210120, end: 20210731
  4. AMIODARONE [Concomitant]
     Active Substance: AMIODARONE
     Dosage: TWO APPLICATIONS, TOTAL
     Dates: start: 20210726, end: 20210730
  5. FLECAINIDE [Concomitant]
     Active Substance: FLECAINIDE
     Dosage: 800 (MG/D (BIS 400) )
     Dates: start: 20210701, end: 20210730
  6. METOPROLOL SUCCINATE [Concomitant]
     Active Substance: METOPROLOL SUCCINATE
     Dosage: 95 (MG/D (2X 47.5) )
     Dates: start: 20210701, end: 20210730
  7. Tavor [Concomitant]
     Dates: start: 20210421, end: 20210421

REACTIONS (6)
  - Tachycardia foetal [Unknown]
  - Ascites [Unknown]
  - Hydrops foetalis [Unknown]
  - Pericardial effusion [Unknown]
  - Foetal exposure during pregnancy [Unknown]
  - Foetal death [Fatal]
